FAERS Safety Report 24347378 (Version 1)
Quarter: 2024Q3

REPORT INFORMATION
  Report Type: Spontaneous
  Country: US (occurrence: US)
  Receive Date: 20240922
  Receipt Date: 20240922
  Transmission Date: 20241017
  Serious: No
  Sender: CIPLA
  Company Number: US-CIPLA LTD.-2023US06096

PATIENT

DRUGS (14)
  1. DICLOFENAC [Suspect]
     Active Substance: DICLOFENAC
     Indication: Arthritis
     Dosage: UNK
     Route: 061
     Dates: start: 2022
  2. ACETAMINOPHEN\HYDROCODONE [Concomitant]
     Active Substance: ACETAMINOPHEN\HYDROCODONE
     Indication: Arthralgia
     Dosage: 7.5-325 MG / 1 TABLET EVERY 12 HOURS (SHE CANNOT TAKE IT EVERY 8 HOURS) (SHE WAS TAKING IT FOR SEVER
     Route: 065
  3. DICLOFENAC SODIUM [Concomitant]
     Active Substance: DICLOFENAC\DICLOFENAC SODIUM
     Indication: Antiinflammatory therapy
     Dosage: 75 MILLIGRAM, BID (TWICE A DAY)
     Route: 065
     Dates: start: 2018
  4. ROSUVASTATIN [Concomitant]
     Active Substance: ROSUVASTATIN\ROSUVASTATIN CALCIUM
     Indication: Hypercholesterolaemia
     Dosage: 20 MILLIGRAM, QD (ONCE A DAY) (AT LEAST 5 YEARS? IT WAS CHANGED FROM SIMVASTATIN TO ROSUVASTATIN)
     Route: 065
     Dates: start: 2018
  5. BACLOFEN [Concomitant]
     Active Substance: BACLOFEN
     Indication: Muscle relaxant therapy
     Dosage: 10 MILLIGRAM, BID (TWICE A DAY)  2019-2020 (3-4 YEARS AGO)
     Route: 065
  6. LOSARTAN AND HYDROCHLOROTHIAZIDE [Concomitant]
     Active Substance: HYDROCHLOROTHIAZIDE\LOSARTAN POTASSIUM
     Indication: Blood pressure management
     Dosage: 50-12.5 MG / QD (ONCE A DAY) (20 YEARS AGO)
     Route: 065
     Dates: start: 2003
  7. GABAPENTIN [Concomitant]
     Active Substance: GABAPENTIN
     Indication: Neuralgia
     Dosage: 100 MILLIGRAM, BID (TWICE A DAY) (3 YEARS AGO)
     Route: 065
     Dates: start: 2020
  8. GABAPENTIN [Concomitant]
     Active Substance: GABAPENTIN
     Indication: Restless legs syndrome
  9. OMEPRAZOLE [Concomitant]
     Active Substance: OMEPRAZOLE
     Indication: Gastrooesophageal reflux disease
     Dosage: 20 MILLIGRAM, QD (ONCE A DAY) (12 YEARS AGO)
     Route: 065
     Dates: start: 2011
  10. ALPRAZOLAM [Concomitant]
     Active Substance: ALPRAZOLAM
     Indication: Insomnia
     Dosage: 0.5MG / 4 TIMES A WEEK AS NEEDED (7 YEARS AGO)
     Route: 065
     Dates: start: 2016
  11. ASPIRIN [Concomitant]
     Active Substance: ASPIRIN
     Indication: Cardiac disorder
     Dosage: 81 MILLIGRAM, UNK (PATIENT WAS TAKING IT ALL THE LIFE)
     Route: 065
  12. MAGNESIUM ACETATE [Concomitant]
     Active Substance: MAGNESIUM ACETATE
     Indication: Cardiac disorder
     Dosage: 400 MILLIGRAM, QD (ONCE A DAY) (3 YEARS AGO)
     Route: 065
     Dates: start: 2020
  13. VITAMIN D3 [Concomitant]
     Active Substance: CHOLECALCIFEROL
     Indication: Bone disorder
     Dosage: 500 IU INTERNATIONAL UNIT(S), QD (ONCE A DAY) (2019-2020 (3-4 YEARS AGO))
     Route: 065
  14. ALBUTEROL SULFATE [Concomitant]
     Active Substance: ALBUTEROL SULFATE
     Indication: Chronic obstructive pulmonary disease
     Dosage: 2-4 PUFFS A DAY (RESCUE INHALER FOR COPD WHEN SHE CANNOT BREATHE OR WHEN SHE HAS AN ASTHMA ATTACK)
     Route: 065
     Dates: start: 2008

REACTIONS (1)
  - Off label use [Unknown]

NARRATIVE: CASE EVENT DATE: 20220101
